FAERS Safety Report 11734422 (Version 23)
Quarter: 2020Q3

REPORT INFORMATION
  Report Type: Spontaneous
  Country: US (occurrence: US)
  Receive Date: 20151113
  Receipt Date: 20200908
  Transmission Date: 20201102
  Serious: Yes (Hospitalization, Congenital Anomaly, Other)
  Sender: FDA-Public Use
  Company Number: PHEH2015US023443

PATIENT
  Sex: Female

DRUGS (6)
  1. ZOFRAN [Suspect]
     Active Substance: ONDANSETRON HYDROCHLORIDE
     Indication: FOETAL EXPOSURE DURING PREGNANCY
     Route: 064
  2. ONDANSETRON AUROBINDO [Suspect]
     Active Substance: ONDANSETRON HYDROCHLORIDE
     Indication: FOETAL EXPOSURE DURING PREGNANCY
     Dosage: MOTHER^S DOSE: 4 MG 1 TO 2 TIMES A DAY
     Route: 064
  3. ONDANSETRONE RANBAXY [Suspect]
     Active Substance: ONDANSETRON HYDROCHLORIDE
     Indication: FOETAL EXPOSURE DURING PREGNANCY
     Dosage: MOTHER^S DOSE: 4 MG 1 TO 2 TIMES A DAY
     Route: 064
  4. ONDANSETRON [Suspect]
     Active Substance: ONDANSETRON
     Indication: FOETAL EXPOSURE DURING PREGNANCY
     Dosage: MOTHER^S DOSE: 4 MG 1 TO 2 TIMES A DAY
     Route: 064
  5. ONDANSETRON DR REDDY [Suspect]
     Active Substance: ONDANSETRON
     Indication: FOETAL EXPOSURE DURING PREGNANCY
     Dosage: MOTHER^S DOSE: 4 MG 1 TO 2 TIMES A DAY
     Route: 064
  6. ONDANSETRON [Suspect]
     Active Substance: ONDANSETRON
     Indication: FOETAL EXPOSURE DURING PREGNANCY
     Dosage: MOTHER^S DOSE: 4 MG, 1 TO 2 TIMES A DAY
     Route: 064

REACTIONS (66)
  - Congenital anomaly [Unknown]
  - Low set ears [Unknown]
  - Foetal exposure during pregnancy [Unknown]
  - Strabismus [Unknown]
  - Diarrhoea [Unknown]
  - Laryngomalacia [Unknown]
  - Developmental hip dysplasia [Unknown]
  - Dysmorphism [Unknown]
  - Gastrooesophageal reflux disease [Unknown]
  - Injury [Unknown]
  - Developmental delay [Unknown]
  - Urine output decreased [Unknown]
  - Dermatitis atopic [Unknown]
  - Speech disorder [Unknown]
  - Cleft palate [Unknown]
  - Atrial septal defect [Unknown]
  - Micrognathia [Unknown]
  - Hypotelorism of orbit [Unknown]
  - Renal failure [Unknown]
  - Tricuspid valve incompetence [Unknown]
  - Respiratory syncytial virus bronchiolitis [Unknown]
  - Sepsis [Unknown]
  - Neonatal tachypnoea [Unknown]
  - Urinary tract infection [Unknown]
  - Dehydration [Unknown]
  - Weight decreased [Unknown]
  - Otospondylomegaepiphyseal dysplasia [Unknown]
  - Hypoxia [Unknown]
  - Chronic kidney disease [Unknown]
  - Renal hypertension [Unknown]
  - Anhedonia [Unknown]
  - Essential hypertension [Unknown]
  - Hypercapnia [Unknown]
  - Viral infection [Unknown]
  - Abdominal distension [Unknown]
  - Benign congenital hypotonia [Unknown]
  - Pneumonia aspiration [Unknown]
  - Hyperkalaemia [Unknown]
  - Laryngeal stenosis [Unknown]
  - Tracheitis [Unknown]
  - Birth trauma [Unknown]
  - Respiratory distress [Unknown]
  - Astigmatism [Unknown]
  - Rash [Unknown]
  - Multiple congenital abnormalities [Unknown]
  - Renal dysplasia [Unknown]
  - Microtia [Unknown]
  - Plagiocephaly [Unknown]
  - Clavicle fracture [Unknown]
  - Upper airway obstruction [Unknown]
  - Growth hormone deficiency [Unknown]
  - Pain [Unknown]
  - Dyspnoea [Unknown]
  - Anxiety [Unknown]
  - Microphthalmos [Unknown]
  - Left-to-right cardiac shunt [Unknown]
  - Emotional distress [Unknown]
  - Selective eating disorder [Unknown]
  - Iron deficiency anaemia [Unknown]
  - Pruritus [Unknown]
  - Pyrexia [Unknown]
  - Microgenia [Unknown]
  - Cephalhaematoma [Unknown]
  - Pyelonephritis [Unknown]
  - Gastroenteritis viral [Unknown]
  - Candida nappy rash [Unknown]
